FAERS Safety Report 4558170-0 (Version None)
Quarter: 2005Q1

REPORT INFORMATION
  Report Type: 
  Country: None (occurrence: None)
  Receive Date: 20050103
  Receipt Date: 20040924
  Transmission Date: 20050727
  Serious: Yes (Other)
  Sender: FDA-Public Use
  Company Number: 2004UW20051

PATIENT
  Age: 79 Year
  Sex: Female
  Weight: 74.8435 kg

DRUGS (4)
  1. NEXIUM [Suspect]
     Indication: GASTROOESOPHAGEAL REFLUX DISEASE
  2. CRESTOR [Suspect]
     Dosage: 10 MG DAILY PO
     Route: 048
  3. NEXIUM [Concomitant]
  4. ZOCOR [Concomitant]

REACTIONS (2)
  - ADVERSE DRUG REACTION [None]
  - CONSTIPATION [None]
